FAERS Safety Report 12262792 (Version 1)
Quarter: 2016Q2

REPORT INFORMATION
  Report Type: Spontaneous
  Country: BE (occurrence: BE)
  Receive Date: 20160413
  Receipt Date: 20160413
  Transmission Date: 20160815
  Serious: Yes (Hospitalization, Other)
  Sender: FDA-Public Use
  Company Number: BE-CELGENE-BEL-2016041116

PATIENT
  Age: 76 Year
  Sex: Male
  Weight: 82 kg

DRUGS (1)
  1. AZACITIDINE INJECTABLE [Suspect]
     Active Substance: AZACITIDINE
     Indication: MYELODYSPLASTIC SYNDROME
     Route: 058
     Dates: start: 20150714, end: 20150720

REACTIONS (1)
  - Neutropenic colitis [Recovered/Resolved]

NARRATIVE: CASE EVENT DATE: 20150730
